FAERS Safety Report 25456030 (Version 1)
Quarter: 2025Q2

REPORT INFORMATION
  Report Type: Spontaneous
  Country: CA (occurrence: CA)
  Receive Date: 20250619
  Receipt Date: 20250619
  Transmission Date: 20250717
  Serious: Yes (Other)
  Sender: KARYOPHARM THERAPEUTICS
  Company Number: CA-KARYOPHARM-2025KPT100251

PATIENT

DRUGS (4)
  1. SELINEXOR [Suspect]
     Active Substance: SELINEXOR
     Indication: Plasma cell myeloma
     Route: 048
     Dates: start: 20250422, end: 2025
  2. SELINEXOR [Suspect]
     Active Substance: SELINEXOR
     Route: 048
     Dates: start: 202505, end: 2025
  3. DEXAMETHASONE [Concomitant]
     Active Substance: DEXAMETHASONE
  4. BORTEZOMIB [Concomitant]
     Active Substance: BORTEZOMIB

REACTIONS (4)
  - Plasma cell myeloma [Unknown]
  - Asthenia [Unknown]
  - Fatigue [Unknown]
  - Treatment delayed [Unknown]

NARRATIVE: CASE EVENT DATE: 20250101
